FAERS Safety Report 25805317 (Version 2)
Quarter: 2025Q3

REPORT INFORMATION
  Report Type: Spontaneous
  Country: US (occurrence: US)
  Receive Date: 20250916
  Receipt Date: 20250925
  Transmission Date: 20251021
  Serious: Yes (Life-Threatening, Hospitalization)
  Sender: TEVA
  Company Number: US-TEVA-VS-3370913

PATIENT
  Age: 57 Year
  Sex: Male

DRUGS (3)
  1. NALOXONE [Suspect]
     Active Substance: NALOXONE
     Indication: Reversal of opiate activity
     Route: 065
  2. FENTANYL [Suspect]
     Active Substance: FENTANYL
     Indication: Product used for unknown indication
     Route: 065
  3. DEVICE [Suspect]
     Active Substance: DEVICE
     Route: 065

REACTIONS (3)
  - Drug abuse [Unknown]
  - Hashimoto^s encephalopathy [Recovering/Resolving]
  - Drug ineffective [Unknown]
